FAERS Safety Report 4786054-1 (Version None)
Quarter: 2005Q3

REPORT INFORMATION
  Report Type: 
  Country: None (occurrence: None)
  Receive Date: 20050930
  Receipt Date: 20050930
  Transmission Date: 20060218
  Serious: Yes (Life-Threatening, Hospitalization)
  Sender: FDA-Public Use
  Company Number: None

PATIENT
  Age: 69 Year
  Sex: Male
  Weight: 85.2762 kg

DRUGS (6)
  1. VYTORIN [Suspect]
     Indication: BLOOD CHOLESTEROL INCREASED
     Dosage: 1 TABLET DAILY PO
     Route: 048
     Dates: start: 20050621, end: 20050912
  2. FOLIC [Concomitant]
  3. SOTALOL HCL [Concomitant]
  4. KETOPROFEN [Concomitant]
  5. NEXIUM [Concomitant]
  6. WARFARIN SODIUM [Concomitant]

REACTIONS (8)
  - ERYTHEMA [None]
  - EYE SWELLING [None]
  - OEDEMA PERIPHERAL [None]
  - PRURITUS [None]
  - RASH [None]
  - SWELLING FACE [None]
  - SWOLLEN TONGUE [None]
  - URTICARIA [None]
